FAERS Safety Report 22012281 (Version 1)
Quarter: 2023Q1

REPORT INFORMATION
  Report Type: Report from Study
  Country: US (occurrence: US)
  Receive Date: 20230220
  Receipt Date: 20230220
  Transmission Date: 20230418
  Serious: No
  Sender: FDA-Public Use
  Company Number: US-AURINIA PHARMACEUTICALS INC.-AUR-002396

PATIENT
  Sex: Female

DRUGS (1)
  1. LUPKYNIS [Suspect]
     Active Substance: VOCLOSPORIN
     Indication: Lupus nephritis
     Dosage: 15.8 MILLIGRAM, BID
     Route: 048
     Dates: start: 20220926, end: 202210

REACTIONS (6)
  - Protein total increased [Unknown]
  - Confusional state [Recovering/Resolving]
  - Stomatitis [Recovering/Resolving]
  - Muscle spasms [Unknown]
  - Tremor [Unknown]
  - Adverse event [Unknown]
